FAERS Safety Report 23916854 (Version 1)
Quarter: 2024Q2

REPORT INFORMATION
  Report Type: Spontaneous
  Country: JP (occurrence: JP)
  Receive Date: 20240529
  Receipt Date: 20240529
  Transmission Date: 20240716
  Serious: Yes (Hospitalization, Other)
  Sender: FDA-Public Use
  Company Number: JP-OTSUKA-2024_014562

PATIENT
  Age: 28 Year
  Sex: Female

DRUGS (10)
  1. ARIPIPRAZOLE [Suspect]
     Active Substance: ARIPIPRAZOLE
     Indication: Depression
     Dosage: TOOK A LARGE AMOUNT OF MEDICATION IN THE BEGINNING
     Route: 048
     Dates: start: 2021
  2. REXULTI [Suspect]
     Active Substance: BREXPIPRAZOLE
     Indication: Depression
     Dosage: 1 MG/DAY
     Route: 048
     Dates: start: 202404, end: 202405
  3. REXULTI [Suspect]
     Active Substance: BREXPIPRAZOLE
     Dosage: INCREASED TO 1.5 MG, AFTER BREAKFAST
     Route: 048
     Dates: start: 202405
  4. LATUDA [Suspect]
     Active Substance: LURASIDONE HYDROCHLORIDE
     Indication: Product used for unknown indication
     Dosage: 60MG
     Route: 048
  5. LATUDA [Suspect]
     Active Substance: LURASIDONE HYDROCHLORIDE
     Dosage: REDUCE THE DOSE TO 40 MG
     Route: 048
     Dates: start: 202404
  6. LATUDA [Suspect]
     Active Substance: LURASIDONE HYDROCHLORIDE
     Dosage: RETURNED TO 60 MG, AFTER DINNER
     Route: 048
     Dates: start: 2024
  7. PAROXETINE HYDROCHLORIDE [Suspect]
     Active Substance: PAROXETINE HYDROCHLORIDE\PAROXETINE HYDROCHLORIDE ANHYDROUS
     Indication: Product used for unknown indication
     Dosage: TOOK A LARGE AMOUNT OF MEDICATION
     Route: 048
     Dates: start: 2021
  8. PAROXETINE HYDROCHLORIDE [Suspect]
     Active Substance: PAROXETINE HYDROCHLORIDE\PAROXETINE HYDROCHLORIDE ANHYDROUS
     Dosage: 25MG
     Route: 048
  9. PAROXETINE HYDROCHLORIDE [Suspect]
     Active Substance: PAROXETINE HYDROCHLORIDE\PAROXETINE HYDROCHLORIDE ANHYDROUS
     Dosage: 20MG, AFTER DINNER
     Route: 048
     Dates: start: 2024
  10. TRINTELLIX [Suspect]
     Active Substance: VORTIOXETINE HYDROBROMIDE
     Indication: Product used for unknown indication
     Dosage: 20MG, AFTER DINNER
     Route: 048

REACTIONS (7)
  - Hypothyroidism [Unknown]
  - Suicidal ideation [Unknown]
  - General physical health deterioration [Unknown]
  - Mood swings [Unknown]
  - Anxiety [Recovering/Resolving]
  - Insomnia [Unknown]
  - Overdose [Unknown]

NARRATIVE: CASE EVENT DATE: 20210101
